FAERS Safety Report 13242435 (Version 2)
Quarter: 2017Q1

REPORT INFORMATION
  Report Type: Spontaneous
  Country: US (occurrence: US)
  Receive Date: 20170216
  Receipt Date: 20170314
  Transmission Date: 20170428
  Serious: Yes (Hospitalization)
  Sender: FDA-Public Use
  Company Number: US-ELI_LILLY_AND_COMPANY-US201608006018

PATIENT
  Sex: Female

DRUGS (4)
  1. CYMBALTA [Suspect]
     Active Substance: DULOXETINE HYDROCHLORIDE
     Indication: DEPRESSION
     Dosage: 60 MG, BID
     Route: 048
     Dates: end: 201606
  2. LUNESTA [Suspect]
     Active Substance: ESZOPICLONE
     Indication: SLEEP DISORDER
     Dosage: 3 MG, QD
     Route: 048
  3. HYDRALAZINE [Concomitant]
     Active Substance: HYDRALAZINE HYDROCHLORIDE
     Indication: HYPERTENSION
     Dosage: 25 MG, QID
     Route: 048
  4. REMERON [Suspect]
     Active Substance: MIRTAZAPINE
     Indication: SLEEP DISORDER
     Dosage: 15 MG, QD
     Route: 048

REACTIONS (21)
  - Decreased appetite [Unknown]
  - Drug withdrawal syndrome [Unknown]
  - Suicidal ideation [Unknown]
  - Poor personal hygiene [Unknown]
  - Headache [Unknown]
  - Insomnia [Unknown]
  - Agitation [Unknown]
  - Hypomania [Unknown]
  - Sensory disturbance [Unknown]
  - Affect lability [Unknown]
  - Paraesthesia [Unknown]
  - Dysphoria [Unknown]
  - Social avoidant behaviour [Unknown]
  - Fatigue [Unknown]
  - Mood swings [Unknown]
  - Hyperhidrosis [Unknown]
  - Nausea [Unknown]
  - Confusional state [Unknown]
  - Irritability [Unknown]
  - Dizziness [Unknown]
  - Anxiety [Unknown]
